FAERS Safety Report 7621912-1 (Version None)
Quarter: 2011Q3

REPORT INFORMATION
  Report Type: 
  Country: None (occurrence: None)
  Receive Date: 20110720
  Receipt Date: 20110712
  Transmission Date: 20111222
  Serious: No
  Sender: FDA-Public Use
  Company Number: US-BIOGENIDEC-2011BI025955

PATIENT
  Age: 52 Year
  Sex: Female

DRUGS (3)
  1. ZANAFLEX [Concomitant]
     Indication: TREMOR
  2. BACLOFEN [Concomitant]
     Indication: TREMOR
  3. TYSABRI [Suspect]
     Indication: MULTIPLE SCLEROSIS
     Route: 042
     Dates: start: 20100318

REACTIONS (3)
  - SPEECH DISORDER [None]
  - ASTHENIA [None]
  - VIITH NERVE PARALYSIS [None]
